FAERS Safety Report 4866865-4 (Version None)
Quarter: 2005Q4

REPORT INFORMATION
  Report Type: 
  Country: None (occurrence: None)
  Receive Date: 20051222
  Receipt Date: 20051209
  Transmission Date: 20060501
  Serious: Yes (Death, Life-Threatening)
  Sender: FDA-Public Use
  Company Number: HQWYE477415SEP05

PATIENT
  Age: 64 Year
  Sex: Male

DRUGS (13)
  1. GEMTUZUMAB OZOGAMICIN                 (GEMTUZUMAB OZOGAMICIN) [Suspect]
     Indication: ACUTE MYELOID LEUKAEMIA
     Dosage: A SINGLE 11 MG DOSE
     Dates: start: 20050829, end: 20050829
  2. ALLOPURINOL [Concomitant]
  3. FLUCONAZOLE [Concomitant]
  4. ZOVIRAX [Concomitant]
  5. TRAMADOL HCL [Concomitant]
  6. EUSAPRIM FORTE                (SULFAMETHOXAZOLE/TRIMETHOPRIM) [Concomitant]
  7. CORSODYL            (CHLORHEXIDINE GLUCONATE) [Concomitant]
  8. NYSTATIN [Concomitant]
  9. TARGOCID [Concomitant]
  10. LASIX [Concomitant]
  11. ZANTAC (RANITIDONE HYDROCHLORIDE) [Concomitant]
  12. MAXIPIME (CEFEPIME HYDROCHLOLRIDE) [Concomitant]
  13. ACETAMINOPHEN [Concomitant]

REACTIONS (7)
  - CENTRAL LINE INFECTION [None]
  - CHEST PAIN [None]
  - EMPHYSEMA [None]
  - LUNG INFILTRATION [None]
  - PAINFUL RESPIRATION [None]
  - PLEURAL EFFUSION [None]
  - STAPHYLOCOCCAL INFECTION [None]
